FAERS Safety Report 4317760-0 (Version None)
Quarter: 2004Q1

REPORT INFORMATION
  Report Type: 
  Country: None (occurrence: None)
  Receive Date: 20040315
  Receipt Date: 20040305
  Transmission Date: 20041129
  Serious: Yes (Life-Threatening)
  Sender: FDA-Public Use
  Company Number: WAES 0403USA00893

PATIENT
  Age: 5 Year
  Sex: Male

DRUGS (4)
  1. CARBENIN [Concomitant]
  2. PEPCID [Suspect]
     Route: 042
     Dates: start: 20040226, end: 20040226
  3. DIFLUCAN [Concomitant]
  4. ONCOVIN [Suspect]

REACTIONS (4)
  - CONVULSION [None]
  - DIABETES INSIPIDUS [None]
  - HYPONATRAEMIA [None]
  - RESPIRATORY ARREST [None]
